FAERS Safety Report 18979206 (Version 1)
Quarter: 2021Q1

REPORT INFORMATION
  Report Type: Report from Study
  Country: CA (occurrence: CA)
  Receive Date: 20210308
  Receipt Date: 20210308
  Transmission Date: 20210420
  Serious: Yes (Other)
  Sender: FDA-Public Use
  Company Number: CA-JNJFOC-20210141885

PATIENT
  Age: 46 Year
  Sex: Female

DRUGS (1)
  1. REMICADE [Suspect]
     Active Substance: INFLIXIMAB
     Indication: COLITIS ULCERATIVE
     Route: 042
     Dates: start: 20181018, end: 20201217

REACTIONS (2)
  - Mammoplasty [Recovering/Resolving]
  - Capsulorrhaphy [Recovering/Resolving]

NARRATIVE: CASE EVENT DATE: 20210211
